FAERS Safety Report 24253340 (Version 1)
Quarter: 2024Q3

REPORT INFORMATION
  Report Type: Report from Study
  Country: IT (occurrence: IT)
  Receive Date: 20240827
  Receipt Date: 20240827
  Transmission Date: 20241017
  Serious: Yes (Other)
  Sender: RANBAXY
  Company Number: IT-SUN PHARMACEUTICAL INDUSTRIES LTD-2024R1-464575

PATIENT
  Age: 10 Year
  Sex: Male

DRUGS (3)
  1. CISPLATIN [Suspect]
     Active Substance: CISPLATIN
     Indication: Chemotherapy
     Dosage: UNK
     Route: 065
  2. METHOTREXATE [Suspect]
     Active Substance: METHOTREXATE
     Indication: Chemotherapy
     Dosage: UNK
     Route: 065
  3. MIFAMURTIDE ANHYDROUS [Suspect]
     Active Substance: MIFAMURTIDE ANHYDROUS
     Indication: Chemotherapy
     Dosage: UNK
     Route: 065

REACTIONS (1)
  - Left ventricular dysfunction [Unknown]
